FAERS Safety Report 24044876 (Version 1)
Quarter: 2024Q3

REPORT INFORMATION
  Report Type: Spontaneous
  Country: DE (occurrence: DE)
  Receive Date: 20240703
  Receipt Date: 20240703
  Transmission Date: 20241017
  Serious: Yes (Hospitalization)
  Sender: UCB
  Company Number: None

PATIENT
  Age: 53 Year
  Sex: Female
  Weight: 73 kg

DRUGS (1)
  1. BIMZELX [Suspect]
     Active Substance: BIMEKIZUMAB-BKZX
     Indication: Psoriasis
     Dosage: 2 SYRINGES EVERY 8 WEEKS
     Route: 058
     Dates: start: 20230224, end: 202406

REACTIONS (3)
  - Rash pruritic [Recovering/Resolving]
  - Pain of skin [Recovering/Resolving]
  - Dandruff [Recovering/Resolving]

NARRATIVE: CASE EVENT DATE: 20230101
